FAERS Safety Report 18542530 (Version 2)
Quarter: 2020Q4

REPORT INFORMATION
  Report Type: Spontaneous
  Country: US (occurrence: US)
  Receive Date: 20201124
  Receipt Date: 20201229
  Transmission Date: 20210114
  Serious: No
  Sender: FDA-Public Use
  Company Number: US-BEH-2020125300

PATIENT
  Sex: Female

DRUGS (4)
  1. HCTZ [Concomitant]
     Active Substance: HYDROCHLOROTHIAZIDE
  2. TELMISARTAN. [Concomitant]
     Active Substance: TELMISARTAN
  3. HIZENTRA [Suspect]
     Active Substance: HUMAN IMMUNOGLOBULIN G
     Indication: IMMUNODEFICIENCY
  4. HIZENTRA [Suspect]
     Active Substance: HUMAN IMMUNOGLOBULIN G
     Indication: IMMUNODEFICIENCY COMMON VARIABLE
     Dosage: 10 GRAM, QW
     Route: 058
     Dates: start: 20200430

REACTIONS (6)
  - Peripheral swelling [Unknown]
  - Photopsia [Unknown]
  - Infection [Unknown]
  - Abdominal pain upper [Unknown]
  - Ill-defined disorder [Unknown]
  - Weight increased [Unknown]
